FAERS Safety Report 4280214-4 (Version None)
Quarter: 2004Q1

REPORT INFORMATION
  Report Type: 
  Country: None (occurrence: None)
  Receive Date: 20040126
  Receipt Date: 20040108
  Transmission Date: 20041129
  Serious: Yes (Hospitalization)
  Sender: FDA-Public Use
  Company Number: 190163

PATIENT
  Age: 77 Year
  Sex: Female
  Weight: 58.9676 kg

DRUGS (7)
  1. AVONEX [Suspect]
     Indication: MULTIPLE SCLEROSIS
     Dosage: 30 MCG QW IM
     Route: 030
     Dates: start: 20010101, end: 20031201
  2. AVONEX [Suspect]
     Indication: MULTIPLE SCLEROSIS
     Dosage: 30 MCG QW IM
     Route: 030
     Dates: start: 20031201
  3. ALTACE [Concomitant]
  4. LASIX [Concomitant]
  5. POTASSIUM [Concomitant]
  6. ZOLOFT [Concomitant]
  7. VITAMIN CAP [Concomitant]

REACTIONS (4)
  - FALL [None]
  - MUSCLE INJURY [None]
  - OEDEMA PERIPHERAL [None]
  - PYREXIA [None]
